FAERS Safety Report 8379396-4 (Version None)
Quarter: 2012Q2

REPORT INFORMATION
  Report Type: 
  Country: None (occurrence: None)
  Receive Date: 20120523
  Receipt Date: 20120515
  Transmission Date: 20120825
  Serious: Yes (Other)
  Sender: FDA-Public Use
  Company Number: ES-B.I. PHARMACEUTICALS,INC./RIDGEFIELD-2012-ES-00164ES

PATIENT
  Age: 70 Year
  Sex: Female

DRUGS (11)
  1. FLECAINIDE ACETATE [Concomitant]
     Dosage: 100 MG
     Route: 048
  2. SINTROM [Concomitant]
     Indication: ATRIAL FIBRILLATION
  3. OMEPRAZOLE [Concomitant]
     Dosage: 20 MG
     Route: 048
  4. AMITRIPTYLINE HCL [Concomitant]
     Dosage: 25 MG
     Route: 048
  5. SIMVASTATIN [Concomitant]
     Dosage: 20 MG
     Route: 048
  6. DIAZEPAM [Concomitant]
     Dosage: 5 MG
     Route: 048
  7. PRADAXA [Suspect]
     Dosage: 220 MG
     Route: 048
     Dates: start: 20120305, end: 20120305
  8. OSSEOR [Concomitant]
     Route: 048
  9. OSVICAL D [Concomitant]
     Dosage: 2 FIXED DOSES DAILY
     Route: 048
  10. PRADAXA [Suspect]
     Indication: ATRIAL FIBRILLATION
     Dosage: 110 MG
     Route: 048
     Dates: start: 20120228, end: 20120304
  11. BISOPROLOL FUMARATE [Concomitant]
     Dosage: 5 MG
     Route: 048

REACTIONS (5)
  - DYSPEPSIA [None]
  - PAIN [None]
  - BURNING SENSATION [None]
  - ABDOMINAL PAIN [None]
  - DRUG INTOLERANCE [None]
